FAERS Safety Report 7281497-9 (Version None)
Quarter: 2011Q1

REPORT INFORMATION
  Report Type: 
  Country: None (occurrence: None)
  Receive Date: 20110208
  Receipt Date: 20110127
  Transmission Date: 20110831
  Serious: Yes (Other)
  Sender: FDA-Public Use
  Company Number: PHHY2011US06916

PATIENT
  Sex: Female

DRUGS (17)
  1. GILENYA [Suspect]
     Indication: MULTIPLE SCLEROSIS
     Dosage: 0.5 MG, QD
     Route: 048
     Dates: start: 20110126, end: 20110127
  2. ULTRAM [Concomitant]
     Dosage: UNK
  3. KLONOPIN [Concomitant]
     Dosage: UNK
  4. NORCO [Concomitant]
     Dosage: UNK
  5. AMBIEN [Concomitant]
     Dosage: UNK
  6. ZOFRAN [Concomitant]
     Dosage: UNK
  7. SANCTURA [Concomitant]
     Dosage: UNK
  8. ZYRTEC [Concomitant]
     Dosage: UNK
  9. VALTREX [Concomitant]
     Dosage: UNK
  10. LUVOX [Concomitant]
     Dosage: UNK
  11. SYNTHROID [Concomitant]
     Dosage: UNK
  12. TOPAMAX [Concomitant]
     Dosage: UNK
  13. LAMICTAL [Concomitant]
     Dosage: UNK
  14. ADDERALL 10 [Concomitant]
     Dosage: UNK
  15. CYMBALTA [Concomitant]
     Dosage: UNK
  16. ZOMIG [Concomitant]
     Dosage: UNK
  17. IMITREX [Concomitant]
     Dosage: UNK

REACTIONS (4)
  - PAIN [None]
  - HEART RATE IRREGULAR [None]
  - HEADACHE [None]
  - FATIGUE [None]
